FAERS Safety Report 21556100 (Version 3)
Quarter: 2022Q4

REPORT INFORMATION
  Report Type: Report from Study
  Country: US (occurrence: US)
  Receive Date: 20221104
  Receipt Date: 20221228
  Transmission Date: 20230112
  Serious: Yes (Hospitalization)
  Sender: FDA-Public Use
  Company Number: US-OTSUKA-2022_050289

PATIENT
  Sex: Male
  Weight: 101.15 kg

DRUGS (1)
  1. CEDAZURIDINE\DECITABINE [Suspect]
     Active Substance: CEDAZURIDINE\DECITABINE
     Indication: Myelodysplastic syndrome
     Dosage: 1 DF, QD (FOR 5 DAYS) EVERY 4 WEEKS
     Route: 048
     Dates: start: 20221004

REACTIONS (3)
  - Transfusion [Unknown]
  - Gingival pain [Unknown]
  - Drug ineffective [Unknown]
